FAERS Safety Report 9675836 (Version 1)
Quarter: 2013Q4

REPORT INFORMATION
  Report Type: Spontaneous
  Country: VE (occurrence: VE)
  Receive Date: 20131107
  Receipt Date: 20131107
  Transmission Date: 20140711
  Serious: Yes (Death)
  Sender: FDA-Public Use
  Company Number: VE-GLAXOSMITHKLINE-A1048347A

PATIENT
  Age: 55 Year
  Sex: Female

DRUGS (1)
  1. REVOLADE [Suspect]
     Indication: IMMUNE THROMBOCYTOPENIC PURPURA
     Dosage: 25MG UNKNOWN
     Route: 048

REACTIONS (1)
  - Death [Fatal]
